FAERS Safety Report 9383045 (Version 2)
Quarter: 2013Q3

REPORT INFORMATION
  Report Type: Spontaneous
  Country: ES (occurrence: ES)
  Receive Date: 20130704
  Receipt Date: 20130802
  Transmission Date: 20140515
  Serious: Yes (Other)
  Sender: FDA-Public Use
  Company Number: ES-ABBOTT-13X-144-1114434-00

PATIENT
  Age: 22 Year
  Sex: Female

DRUGS (5)
  1. DEPAKINE CHRONO [Suspect]
     Indication: ADVERSE DRUG REACTION
     Dosage: 1000 MILLIGRAM(S);DAILY, EXTENDED RELEASE TABLET
     Route: 048
     Dates: start: 20110801
  2. OLANZAPINE [Interacting]
     Indication: BIPOLAR I DISORDER
     Route: 048
     Dates: start: 20110801, end: 20110822
  3. OLANZAPINE [Interacting]
     Route: 048
     Dates: start: 20110822, end: 20120222
  4. LORAZEPAM [Interacting]
     Indication: ANXIETY
     Dosage: 1 MILLIGRAM(S);AS NEEDED
     Route: 048
     Dates: start: 20110801
  5. LORMETAZEPAM [Interacting]
     Indication: INSOMNIA
     Dosage: 2 MILLIGRAM(S); AS NEEDED
     Route: 048
     Dates: start: 20110801

REACTIONS (2)
  - Abnormal weight gain [Unknown]
  - Drug interaction [Unknown]
